FAERS Safety Report 7314372-1 (Version None)
Quarter: 2011Q1

REPORT INFORMATION
  Report Type: 
  Country: None (occurrence: None)
  Receive Date: 20110225
  Receipt Date: 20100803
  Transmission Date: 20110831
  Serious: No
  Sender: FDA-Public Use
  Company Number: US-MYLANLABS-2010S1014099

PATIENT
  Age: 3 Year
  Sex: Male

DRUGS (2)
  1. AMNESTEEM [Suspect]
     Indication: NEUROBLASTOMA
     Dates: start: 20100616, end: 20100701
  2. AMNESTEEM [Suspect]
     Dates: start: 20100730

REACTIONS (2)
  - ASPARTATE AMINOTRANSFERASE INCREASED [None]
  - ALANINE AMINOTRANSFERASE INCREASED [None]
